FAERS Safety Report 17965814 (Version 8)
Quarter: 2020Q3

REPORT INFORMATION
  Report Type: Other
  Country: CA (occurrence: CA)
  Receive Date: 20200701
  Receipt Date: 20200922
  Transmission Date: 20201103
  Serious: Yes (Hospitalization, Other)
  Sender: FDA-Public Use
  Company Number: CA-ROCHE-2287664

PATIENT
  Age: 68 Year
  Sex: Female

DRUGS (19)
  1. HYDROCHLOROTHIAZIDE. [Concomitant]
     Active Substance: HYDROCHLOROTHIAZIDE
  2. ESCITALOPRAM [Concomitant]
     Active Substance: ESCITALOPRAM OXALATE
  3. LOSARTAN. [Concomitant]
     Active Substance: LOSARTAN
  4. MORPHINE [Suspect]
     Active Substance: MORPHINE
     Indication: PAIN
     Route: 065
  5. TYLENOL [Concomitant]
     Active Substance: ACETAMINOPHEN
     Indication: PAIN
  6. MOVANTIK [Concomitant]
     Active Substance: NALOXEGOL OXALATE
     Indication: CONSTIPATION
  7. TRIMETHOPRIM. [Concomitant]
     Active Substance: TRIMETHOPRIM
  8. OCREVUS [Suspect]
     Active Substance: OCRELIZUMAB
     Indication: RELAPSING-REMITTING MULTIPLE SCLEROSIS
     Dosage: 300 MG AT DAY 0 AND 14, THEN 600 MG EVERY 6 MONTH
     Route: 042
     Dates: start: 20181015
  9. TRAMADOL. [Suspect]
     Active Substance: TRAMADOL
     Indication: PAIN
     Route: 065
  10. GABAPENTIN. [Concomitant]
     Active Substance: GABAPENTIN
     Dosage: 300 MG 2 TABLETS IN THE MORNING AND AT LUNCH
  11. PREGABALIN. [Concomitant]
     Active Substance: PREGABALIN
     Dosage: 50 MG 4 CAPSULES TWICE A DAY AND 1 AT BEDTIME
  12. LAMOTRIGINE. [Concomitant]
     Active Substance: LAMOTRIGINE
  13. DILAUDID [Suspect]
     Active Substance: HYDROMORPHONE HYDROCHLORIDE
     Indication: PRODUCT USED FOR UNKNOWN INDICATION
     Route: 065
  14. CARBAMAZEPINE. [Concomitant]
     Active Substance: CARBAMAZEPINE
  15. PREDNISONE. [Concomitant]
     Active Substance: PREDNISONE
  16. NABILONE [Concomitant]
     Active Substance: NABILONE
     Indication: PAIN
  17. CODEINE [Concomitant]
     Active Substance: CODEINE
     Indication: PAIN
  18. PANTOPRAZOLE [Concomitant]
     Active Substance: PANTOPRAZOLE
  19. SULFAMETHOXAZOLE [Concomitant]
     Active Substance: SULFAMETHOXAZOLE

REACTIONS (25)
  - Fall [Unknown]
  - Neck pain [Not Recovered/Not Resolved]
  - Gastrointestinal disorder [Not Recovered/Not Resolved]
  - Hypoaesthesia [Unknown]
  - Arthralgia [Unknown]
  - Muscle twitching [Not Recovered/Not Resolved]
  - Skin ulcer [Recovered/Resolved]
  - Kidney infection [Unknown]
  - Skin infection [Unknown]
  - Loss of consciousness [Recovered/Resolved]
  - Drug interaction [Unknown]
  - Cystitis [Not Recovered/Not Resolved]
  - Intervertebral disc disorder [Unknown]
  - Back pain [Not Recovered/Not Resolved]
  - Bladder disorder [Not Recovered/Not Resolved]
  - Drug ineffective [Unknown]
  - Snoring [Not Recovered/Not Resolved]
  - Sexual dysfunction [Not Recovered/Not Resolved]
  - Thrombosis [Unknown]
  - Malaise [Unknown]
  - Asthenia [Not Recovered/Not Resolved]
  - Muscular weakness [Recovering/Resolving]
  - Dizziness [Unknown]
  - Gait inability [Unknown]
  - Sleep disorder [Not Recovered/Not Resolved]

NARRATIVE: CASE EVENT DATE: 2019
